FAERS Safety Report 8987255 (Version 1)
Quarter: 2012Q4

REPORT INFORMATION
  Report Type: 
  Country: US (occurrence: US)
  Receive Date: 20121227
  Receipt Date: 20121227
  Transmission Date: 20130627
  Serious: Yes (Other)
  Sender: FDA-Public Use
  Company Number: US-ELI_LILLY_AND_COMPANY-US201212000814

PATIENT
  Sex: Male

DRUGS (2)
  1. HUMATROPE [Suspect]
     Dosage: 0.5 mg, qd
     Dates: start: 1987
  2. HUMATROPE [Suspect]
     Dosage: 0.5 mg, qd

REACTIONS (5)
  - Nephrolithiasis [Unknown]
  - Adrenal gland operation [Unknown]
  - Hypoacusis [Unknown]
  - Drug dose omission [Unknown]
  - Incorrect storage of drug [Unknown]
